FAERS Safety Report 11077309 (Version 3)
Quarter: 2015Q3

REPORT INFORMATION
  Report Type: Report from Study
  Country: CA (occurrence: CA)
  Receive Date: 20150429
  Receipt Date: 20150807
  Transmission Date: 20151125
  Serious: Yes (Death, Hospitalization, Other)
  Sender: FDA-Public Use
  Company Number: CA-ASTRAZENECA-2015SE10191

PATIENT
  Age: 30288 Day
  Sex: Male

DRUGS (2)
  1. ZOLADEX LA [Suspect]
     Active Substance: GOSERELIN ACETATE
     Indication: PROSTATE CANCER
     Route: 058
     Dates: start: 20100224
  2. ZYTIGA [Concomitant]
     Active Substance: ABIRATERONE ACETATE

REACTIONS (11)
  - Pyrexia [Unknown]
  - Abdominal distension [Unknown]
  - Sepsis [Unknown]
  - Skin disorder [Unknown]
  - Death [Fatal]
  - Unresponsive to stimuli [Unknown]
  - Dyspnoea [Unknown]
  - Upper respiratory tract infection [Unknown]
  - Contusion [Unknown]
  - Oxygen saturation decreased [Unknown]
  - Oedema peripheral [Unknown]

NARRATIVE: CASE EVENT DATE: 20150128
